FAERS Safety Report 15030760 (Version 4)
Quarter: 2019Q2

REPORT INFORMATION
  Report Type: Spontaneous
  Country: US (occurrence: US)
  Receive Date: 20180619
  Receipt Date: 20190503
  Transmission Date: 20190711
  Serious: No
  Sender: FDA-Public Use
  Company Number: US-RADIUS HEALTH, INC.-2018US001128

PATIENT
  Age: 75 Year
  Sex: Female
  Weight: 63 kg

DRUGS (10)
  1. IRON [Concomitant]
     Active Substance: IRON
     Indication: PRODUCT USED FOR UNKNOWN INDICATION
  2. LEXAPRO [Concomitant]
     Active Substance: ESCITALOPRAM OXALATE
     Indication: PRODUCT USED FOR UNKNOWN INDICATION
  3. LOSARTAN. [Concomitant]
     Active Substance: LOSARTAN
     Indication: PRODUCT USED FOR UNKNOWN INDICATION
  4. HCTZ [Concomitant]
     Active Substance: HYDROCHLOROTHIAZIDE
     Indication: PRODUCT USED FOR UNKNOWN INDICATION
  5. PROPRANOLOL [Concomitant]
     Active Substance: PROPRANOLOL HYDROCHLORIDE
     Indication: PRODUCT USED FOR UNKNOWN INDICATION
  6. VITAMIN D                          /00107901/ [Concomitant]
     Active Substance: ERGOCALCIFEROL
     Indication: PRODUCT USED FOR UNKNOWN INDICATION
  7. TYMLOS [Suspect]
     Active Substance: ABALOPARATIDE
     Indication: OSTEOPOROSIS POSTMENOPAUSAL
     Dosage: 80 MCG, QD
     Route: 058
     Dates: start: 20180526, end: 20190131
  8. SYNTHROID [Concomitant]
     Active Substance: LEVOTHYROXINE SODIUM
     Indication: PRODUCT USED FOR UNKNOWN INDICATION
  9. NISOLDIPINE. [Concomitant]
     Active Substance: NISOLDIPINE
     Indication: BLOOD PRESSURE INCREASED
     Dosage: 60 MG, UNK
  10. TYMLOS [Suspect]
     Active Substance: ABALOPARATIDE
     Dosage: 80MCG, DAILY
     Route: 058
     Dates: start: 20180526, end: 20190131

REACTIONS (11)
  - Fall [Recovering/Resolving]
  - Dizziness [Recovered/Resolved]
  - Pain in extremity [Unknown]
  - Peripheral swelling [Unknown]
  - Vomiting [Recovered/Resolved]
  - Hypersomnia [Unknown]
  - Nausea [Unknown]
  - Wrong technique in product usage process [Unknown]
  - Fatigue [Not Recovered/Not Resolved]
  - Bone pain [Recovered/Resolved]
  - Hypotension [Unknown]

NARRATIVE: CASE EVENT DATE: 20180526
